FAERS Safety Report 4984074-5 (Version None)
Quarter: 2006Q1

REPORT INFORMATION
  Report Type: 
  Country: None (occurrence: None)
  Receive Date: 20060306
  Receipt Date: 20060111
  Transmission Date: 20060701
  Serious: No
  Sender: FDA-Public Use
  Company Number: 33638

PATIENT

DRUGS (1)
  1. NEVANAC [Suspect]

REACTIONS (1)
  - IMPAIRED HEALING [None]
